FAERS Safety Report 4727396-5 (Version None)
Quarter: 2005Q3

REPORT INFORMATION
  Report Type: 
  Country: None (occurrence: None)
  Receive Date: 20050727
  Receipt Date: 20050727
  Transmission Date: 20060218
  Serious: Yes (Hospitalization)
  Sender: FDA-Public Use
  Company Number: None

PATIENT
  Age: 91 Year
  Sex: Female
  Weight: 51.2565 kg

DRUGS (10)
  1. NAPROXEN [Suspect]
     Indication: PAIN
     Dosage: 220 PO BID [CHRONIC]
     Route: 048
  2. ACTONEL [Concomitant]
  3. PAXIL [Concomitant]
  4. MECLIZINE [Concomitant]
  5. ALEVE [Concomitant]
  6. M.V.I. [Concomitant]
  7. CALCIUM GLUCONATE [Concomitant]
  8. TYLENOL [Concomitant]
  9. SENNA [Concomitant]
  10. LAXATIVE [Concomitant]

REACTIONS (4)
  - ASTHENIA [None]
  - GASTRIC ULCER HAEMORRHAGE [None]
  - HAEMOGLOBIN DECREASED [None]
  - MELAENA [None]
